FAERS Safety Report 17988661 (Version 2)
Quarter: 2020Q3

REPORT INFORMATION
  Report Type: Spontaneous
  Country: US (occurrence: US)
  Receive Date: 20200707
  Receipt Date: 20200709
  Transmission Date: 20201103
  Serious: No
  Sender: FDA-Public Use
  Company Number: US-PFIZER INC-2020252908

PATIENT
  Age: 52 Year
  Sex: Male
  Weight: 104.33 kg

DRUGS (2)
  1. GENOTROPIN [Suspect]
     Active Substance: SOMATROPIN
     Indication: HYPOPITUITARISM
     Dosage: UNK
     Dates: start: 2019
  2. CORTISONE [Concomitant]
     Active Substance: CORTISONE
     Indication: PITUITARY TUMOUR BENIGN
     Dosage: UNK

REACTIONS (1)
  - Drug ineffective [Unknown]
